FAERS Safety Report 9625004 (Version 3)
Quarter: 2013Q4

REPORT INFORMATION
  Report Type: Spontaneous
  Country: US (occurrence: US)
  Receive Date: 20131016
  Receipt Date: 20131127
  Transmission Date: 20140711
  Serious: Yes (Life-Threatening, Hospitalization)
  Sender: FDA-Public Use
  Company Number: US-009507513-1310USA005203

PATIENT
  Age: 63 Year
  Sex: Male
  Weight: 59.41 kg

DRUGS (3)
  1. VICTRELIS [Suspect]
     Indication: CHRONIC HEPATITIS C
     Dosage: 800 MG, TID
     Route: 048
     Dates: start: 20130716
  2. REBETOL [Suspect]
     Indication: CHRONIC HEPATITIS C
     Dosage: UNK UNK, BID
     Route: 048
     Dates: start: 20130604
  3. PEGASYS [Suspect]
     Indication: CHRONIC HEPATITIS C
     Dosage: UNK UNK, QD
     Route: 058
     Dates: start: 20130604

REACTIONS (8)
  - Constipation [Recovered/Resolved]
  - Mental status changes [Recovered/Resolved]
  - Transfusion [Not Recovered/Not Resolved]
  - Memory impairment [Not Recovered/Not Resolved]
  - Anaemia [Recovered/Resolved]
  - Hallucination [Not Recovered/Not Resolved]
  - Mental disorder [Not Recovered/Not Resolved]
  - Gait disturbance [Not Recovered/Not Resolved]
